FAERS Safety Report 5957148-X (Version None)
Quarter: 2008Q4

REPORT INFORMATION
  Report Type: 
  Country: None (occurrence: None)
  Receive Date: 20081118
  Receipt Date: 20080725
  Transmission Date: 20090506
  Serious: Yes (Death, Hospitalization)
  Sender: FDA-Public Use
  Company Number: US-GENENTECH-255138

PATIENT
  Sex: Male
  Weight: 95.5 kg

DRUGS (15)
  1. EFALIZUMAB [Suspect]
     Indication: PSORIASIS
     Dosage: 1 MG, 1/WEEK
     Route: 058
     Dates: start: 20050223, end: 20070104
  2. CALCIPOTRIENE [Concomitant]
     Indication: PSORIASIS
     Dosage: UNK, PRN
     Dates: start: 20050223
  3. COAL TAR PREPARATION [Concomitant]
     Indication: PSORIASIS
     Dosage: UNK, PRN
     Dates: start: 20050223
  4. STEROIDS (UNK INGREDIENTS) [Concomitant]
     Indication: PSORIASIS
     Dosage: UNK, BID
     Dates: start: 20060615
  5. STEROID (UNK INGREDIENTS) [Concomitant]
     Indication: PSORIASIS
     Dosage: UNK, BID
     Dates: start: 20070822
  6. ENBREL [Concomitant]
     Indication: PSORIASIS
     Dosage: 50 MG, 2/WEEK
     Dates: start: 20070111, end: 20080101
  7. RIFAMPIN [Concomitant]
     Indication: DRUG USE FOR UNKNOWN INDICATION
     Dosage: 600 MG, QD
     Route: 048
  8. ETHAMBUTOL HYDROCHLORIDE [Concomitant]
     Indication: DRUG USE FOR UNKNOWN INDICATION
     Dosage: 1600 MG, QD
     Route: 048
  9. ISONIAZID [Concomitant]
     Indication: DRUG USE FOR UNKNOWN INDICATION
     Dosage: 900 MG, QD
     Route: 048
  10. PYRAZINAMIDE [Concomitant]
     Indication: DRUG USE FOR UNKNOWN INDICATION
     Dosage: 2000 MG, QD
     Route: 048
  11. ACYCLOVIR [Concomitant]
     Indication: DRUG USE FOR UNKNOWN INDICATION
     Dosage: 880 MG, UNK
     Route: 042
  12. AMBISOME [Concomitant]
     Indication: DRUG USE FOR UNKNOWN INDICATION
     Dosage: 525 MG, UNK
     Route: 042
  13. AMPICILLIN [Concomitant]
     Indication: DRUG USE FOR UNKNOWN INDICATION
     Dosage: 2 G, Q4H
     Route: 042
  14. VANCOMYCIN [Concomitant]
     Indication: DRUG USE FOR UNKNOWN INDICATION
     Dosage: 1250 MG, Q12H
     Route: 042
  15. CEFEPIME [Concomitant]
     Indication: DRUG USE FOR UNKNOWN INDICATION
     Dosage: 2 G, Q12H
     Route: 042

REACTIONS (2)
  - CEREBRAL HAEMORRHAGE [None]
  - ENCEPHALITIS [None]
